FAERS Safety Report 8302903-4 (Version None)
Quarter: 2012Q2

REPORT INFORMATION
  Report Type: 
  Country: None (occurrence: None)
  Receive Date: 20120420
  Receipt Date: 20120413
  Transmission Date: 20120825
  Serious: Yes (Other)
  Sender: FDA-Public Use
  Company Number: JP-GILEAD-2012-0053861

PATIENT
  Age: 61 Year
  Sex: Female

DRUGS (2)
  1. HEPSERA [Suspect]
     Indication: HEPATITIS B
     Route: 048
  2. LAMIVUDINE (EPIVIR HBV) [Concomitant]
     Indication: HEPATITIS B
     Route: 048

REACTIONS (2)
  - MOTOR NEURONE DISEASE [None]
  - AMYOTROPHIC LATERAL SCLEROSIS [None]
